FAERS Safety Report 20755996 (Version 2)
Quarter: 2022Q2

REPORT INFORMATION
  Report Type: Spontaneous
  Country: BR (occurrence: BR)
  Receive Date: 20220427
  Receipt Date: 20220504
  Transmission Date: 20220721
  Serious: Yes (Other)
  Sender: FDA-Public Use
  Company Number: BR-ORGANON-O2204BRA001920

PATIENT
  Sex: Female
  Weight: 54 kg

DRUGS (1)
  1. ETONOGESTREL [Suspect]
     Active Substance: ETONOGESTREL
     Indication: Hormone replacement therapy
     Dosage: 1 IMPLANT, LEFT ARM
     Route: 059
     Dates: start: 20211113, end: 20220414

REACTIONS (5)
  - Device dislocation [Recovered/Resolved]
  - Scar [Unknown]
  - Movement disorder [Recovered/Resolved]
  - Pain in extremity [Unknown]
  - Product use in unapproved indication [Unknown]

NARRATIVE: CASE EVENT DATE: 20211113
